FAERS Safety Report 9705672 (Version 2)
Quarter: 2013Q4

REPORT INFORMATION
  Report Type: Spontaneous
  Country: US (occurrence: US)
  Receive Date: 20131122
  Receipt Date: 20131122
  Transmission Date: 20140711
  Serious: Yes (Disabling, Other)
  Sender: FDA-Public Use
  Company Number: US-GILEAD-2008-0017258

PATIENT
  Age: 73 Year
  Sex: Male
  Weight: 119.29 kg

DRUGS (16)
  1. LETAIRIS [Suspect]
     Indication: PULMONARY ARTERIAL HYPERTENSION
     Route: 048
     Dates: start: 20080624, end: 20080718
  2. FUROSEMIDE [Concomitant]
     Route: 048
  3. GLIPIZIDE [Concomitant]
     Route: 048
  4. GABAPENTIN [Concomitant]
     Route: 048
  5. PRAVASTATIN SODIUM [Concomitant]
     Route: 048
  6. SPIRONOLACTONE [Concomitant]
     Route: 048
  7. ASPIRIN [Concomitant]
     Route: 048
  8. WARFARIN [Concomitant]
     Route: 048
  9. LOMOTIL [Concomitant]
     Route: 048
  10. OXYGEN [Concomitant]
     Route: 045
  11. POTASSIUM CHLORIDE [Concomitant]
     Route: 048
  12. REMODULIN [Concomitant]
     Indication: PULMONARY HYPERTENSION
     Dosage: CONTINUOUS
     Route: 042
     Dates: start: 200805
  13. COLCHICINE [Concomitant]
     Route: 048
  14. TOPROL [Concomitant]
  15. GLUCOSAMINE CHONDROITIN [Concomitant]
  16. FOLIC ACID [Concomitant]

REACTIONS (3)
  - Oedema peripheral [Recovered/Resolved]
  - Swelling face [Recovering/Resolving]
  - Local swelling [Recovering/Resolving]
